FAERS Safety Report 12001838 (Version 9)
Quarter: 2018Q3

REPORT INFORMATION
  Report Type: Report from Study
  Country: BE (occurrence: BE)
  Receive Date: 20160204
  Receipt Date: 20180824
  Transmission Date: 20181010
  Serious: Yes (Death, Life-Threatening, Hospitalization, Disabling, Other)
  Sender: FDA-Public Use
  Company Number: BE-PFIZER INC-2016050741

PATIENT
  Age: 73 Year
  Sex: Male
  Weight: 70 kg

DRUGS (28)
  1. SUNITINIB MALATE. [Suspect]
     Active Substance: SUNITINIB MALATE
     Indication: METASTATIC RENAL CELL CARCINOMA
     Dosage: 37.5 MG, 1X/DAY
     Route: 048
     Dates: start: 20151027, end: 201512
  2. PRIMPERAN [Concomitant]
     Active Substance: METOCLOPRAMIDE HYDROCHLORIDE
     Indication: NAUSEA
     Dosage: UNK
     Dates: start: 201601, end: 201601
  3. LITICAN /00690801/ [Concomitant]
     Active Substance: ALIZAPRIDE
     Indication: VOMITING
     Dosage: UNK
     Dates: start: 201601, end: 201601
  4. PARACETAMOL [Concomitant]
     Active Substance: ACETAMINOPHEN
     Indication: PYREXIA
     Dosage: UNK
     Dates: start: 201601, end: 201601
  5. MYCOLOG [Concomitant]
     Active Substance: GRAMICIDIN\NEOMYCIN SULFATE\NYSTATIN\TRIAMCINOLONE ACETONIDE
     Indication: ORAL PAIN
     Dosage: UNK
     Dates: start: 201601, end: 201601
  6. TEMESTA [LORAZEPAM] [Concomitant]
     Indication: INSOMNIA
  7. ACTRAPID [Concomitant]
     Active Substance: INSULIN HUMAN
     Indication: PROPHYLAXIS
     Dosage: UNK
     Dates: start: 201601, end: 201601
  8. CLAVUCID [AMOXICILLIN TRIHYDRATE;CLAVULANATE POTASSIUM] [Concomitant]
     Indication: TOOTH ABSCESS
     Dosage: UNK
     Dates: start: 201511, end: 201511
  9. PRAVASTATINE [Concomitant]
     Active Substance: PRAVASTATIN
     Indication: HYPERCHOLESTEROLAEMIA
     Dosage: UNK
     Dates: start: 2010
  10. HALDOL [Concomitant]
     Active Substance: HALOPERIDOL
     Indication: AGITATION
     Dosage: UNK
     Dates: start: 201601, end: 201601
  11. ALPHAGAN P [Concomitant]
     Active Substance: BRIMONIDINE TARTRATE
     Indication: GLAUCOMA
     Dosage: UNK
     Dates: start: 1985
  12. CORDARON [Concomitant]
     Active Substance: AMIODARONE HYDROCHLORIDE
     Indication: PROPHYLAXIS
     Dosage: UNK
     Dates: start: 201601
  13. DIPIDOLOR [Concomitant]
     Active Substance: PIRITRAMIDE
     Indication: CANCER PAIN
     Dosage: UNK
     Dates: start: 201601, end: 201601
  14. ASAFLOW [Concomitant]
     Active Substance: ASPIRIN
     Indication: CARDIOVASCULAR EVENT PROPHYLAXIS
     Dosage: UNK
     Dates: start: 1995, end: 201601
  15. XALATAN [Concomitant]
     Active Substance: LATANOPROST
     Indication: GLAUCOMA
     Dosage: UNK
     Dates: start: 2012
  16. BETAMETHASONE DIPROPIONATE. [Concomitant]
     Active Substance: BETAMETHASONE DIPROPIONATE
     Indication: HYPERKERATOSIS
     Dosage: UNK
     Dates: start: 201601, end: 201601
  17. TRADONAL [Concomitant]
     Active Substance: TRAMADOL HYDROCHLORIDE
     Indication: CANCER PAIN
     Dosage: UNK
     Dates: start: 201601, end: 201601
  18. ZOFRAN [Concomitant]
     Active Substance: ONDANSETRON HYDROCHLORIDE
     Indication: NAUSEA
     Dosage: UNK
     Dates: start: 201601, end: 201601
  19. PANTOMED /01263204/ [Concomitant]
     Active Substance: PANTOPRAZOLE SODIUM
     Indication: PROPHYLAXIS
     Dosage: UNK
     Dates: start: 201601
  20. MEDROL [METHYLPREDNISOLONE] [Concomitant]
     Indication: COUGH
     Dosage: UNK
     Dates: start: 201510, end: 201601
  21. AVESSARON [Concomitant]
     Indication: NAUSEA
     Dosage: UNK
     Dates: start: 201601, end: 201601
  22. AVESSARON [Concomitant]
     Indication: VOMITING
  23. TEMESTA [LORAZEPAM] [Concomitant]
     Indication: ANXIETY
     Dosage: UNK
     Dates: start: 201601, end: 201601
  24. CLEXANE [Concomitant]
     Active Substance: ENOXAPARIN SODIUM
     Indication: THROMBOSIS PROPHYLAXIS
     Dosage: UNK
     Dates: start: 201601
  25. SIMVASTATIN. [Concomitant]
     Active Substance: SIMVASTATIN
     Indication: HYPERCHOLESTEROLAEMIA
     Dosage: UNK
     Dates: end: 201601
  26. ENTEROL [SACCHAROMYCES BOULARDII] [Concomitant]
     Indication: DIARRHOEA
     Dosage: UNK
     Dates: start: 201511, end: 201512
  27. SUNITINIB MALATE. [Suspect]
     Active Substance: SUNITINIB MALATE
     Dosage: 50 MG, 1X/DAY
     Route: 048
     Dates: start: 20151208, end: 201601
  28. EMCONCOR [Concomitant]
     Active Substance: BISOPROLOL FUMARATE
     Indication: HYPERTENSION
     Dosage: UNK
     Dates: start: 1985, end: 201601

REACTIONS (5)
  - Lacrimation increased [Not Recovered/Not Resolved]
  - Multiple organ dysfunction syndrome [Fatal]
  - Ileal perforation [Fatal]
  - Small intestinal obstruction [Fatal]
  - Groin pain [Not Recovered/Not Resolved]

NARRATIVE: CASE EVENT DATE: 201511
